FAERS Safety Report 9275347 (Version 1)
Quarter: 2013Q2

REPORT INFORMATION
  Report Type: Spontaneous
  Country: US (occurrence: None)
  Receive Date: 20130501
  Receipt Date: 20130501
  Transmission Date: 20140414
  Serious: Yes (Hospitalization)
  Sender: FDA-Public Use
  Company Number: None

PATIENT
  Sex: Female

DRUGS (3)
  1. ZIPRASIDONE [Suspect]
     Indication: BIPOLAR DISORDER
     Dosage: 1 CAP
     Dates: start: 20100624, end: 20110821
  2. GUANFARIN [Concomitant]
  3. LAMOTRIGINE [Concomitant]

REACTIONS (3)
  - Mood altered [None]
  - Abnormal behaviour [None]
  - Product substitution issue [None]
